FAERS Safety Report 6811504-6 (Version None)
Quarter: 2010Q2

REPORT INFORMATION
  Report Type: 
  Country: None (occurrence: None)
  Receive Date: 20100625
  Receipt Date: 20100609
  Transmission Date: 20101027
  Serious: No
  Sender: FDA-Public Use
  Company Number: TCI2010A02075

PATIENT
  Age: 78 Year
  Sex: Male

DRUGS (3)
  1. PREVPAC [Suspect]
     Indication: GASTRIC ULCER
     Dosage: 1 CARD (0.5 CARD, 2 IN 1 D), PER ORAL
     Route: 048
     Dates: start: 20100412, end: 20100418
  2. DOGMATYL (SULPIRIDE) [Concomitant]
  3. AMOBAN (ZOPICLONE) [Concomitant]

REACTIONS (5)
  - APTYALISM [None]
  - LACRIMATION INCREASED [None]
  - PHOTOPHOBIA [None]
  - PHOTOPSIA [None]
  - THIRST [None]
